FAERS Safety Report 23638263 (Version 1)
Quarter: 2024Q1

REPORT INFORMATION
  Report Type: Other
  Country: US (occurrence: US)
  Receive Date: 20240315
  Receipt Date: 20240315
  Transmission Date: 20240410
  Serious: No
  Sender: FDA-Public Use
  Company Number: US-TRAVERE-2024TVT00245

PATIENT
  Sex: Female

DRUGS (16)
  1. FILSPARI [Suspect]
     Active Substance: SPARSENTAN
     Indication: Illness
     Dosage: 1 TABLET ONCE DAILY DAYS 1 THROUGH 14,
     Route: 048
  2. FILSPARI [Suspect]
     Active Substance: SPARSENTAN
     Dosage: 2 TABLETS ONCE DAILY DAYS 15 THROUGH 30
     Route: 048
  3. SODIUM BICARBONATE [Concomitant]
     Active Substance: SODIUM BICARBONATE
  4. CALCIUM [Concomitant]
     Active Substance: CALCIUM
  5. ASPIRIN [Concomitant]
     Active Substance: ASPIRIN
  6. BACTRIM [Concomitant]
     Active Substance: SULFAMETHOXAZOLE\TRIMETHOPRIM
  7. PREDNISONE [Concomitant]
     Active Substance: PREDNISONE
  8. LIPITOR [Concomitant]
     Active Substance: ATORVASTATIN CALCIUM
  9. CALCITRIOL [Concomitant]
     Active Substance: CALCITRIOL
  10. TACROLIMUS [Concomitant]
     Active Substance: TACROLIMUS
  11. TUMS [Concomitant]
     Active Substance: CALCIUM CARBONATE
  12. VALCYTE [Concomitant]
     Active Substance: VALGANCICLOVIR HYDROCHLORIDE
  13. FAMOTIDINE [Concomitant]
     Active Substance: FAMOTIDINE
  14. VITAMIN D3 [Concomitant]
     Active Substance: CHOLECALCIFEROL
  15. FERROUS SULFATE [Concomitant]
     Active Substance: FERROUS SULFATE
  16. MYCOPHENOLATE MOFETIL [Concomitant]
     Active Substance: MYCOPHENOLATE MOFETIL

REACTIONS (3)
  - Pain in extremity [Unknown]
  - Swelling [Unknown]
  - Product use in unapproved indication [Unknown]
